FAERS Safety Report 7567954-6 (Version None)
Quarter: 2011Q2

REPORT INFORMATION
  Report Type: 
  Country: None (occurrence: None)
  Receive Date: 20110623
  Receipt Date: 20110616
  Transmission Date: 20111010
  Serious: Yes (Hospitalization, Other)
  Sender: FDA-Public Use
  Company Number: CA-GENZYME-THYM-1002539

PATIENT
  Sex: Male
  Weight: 78 kg

DRUGS (5)
  1. SOLU-MEDROL [Concomitant]
     Indication: PRODUCT USED FOR UNKNOWN INDICATION
  2. CYCLOSPORINE [Suspect]
     Indication: PRODUCT USED FOR UNKNOWN INDICATION
  3. THYMOGLOBULIN [Suspect]
     Indication: PROPHYLAXIS AGAINST GRAFT VERSUS HOST DISEASE
     Dosage: 0.5 MG/KG, UNK
     Route: 042
     Dates: start: 20110403, end: 20110403
  4. THYMOGLOBULIN [Suspect]
     Dosage: 2 MG/KG, UNK
     Route: 042
     Dates: start: 20110404, end: 20110405
  5. CAMPATH [Concomitant]
     Indication: PRODUCT USED FOR UNKNOWN INDICATION
     Dosage: 20 MG, ONCE
     Route: 058

REACTIONS (4)
  - HAEMOLYTIC ANAEMIA [None]
  - ACUTE GRAFT VERSUS HOST DISEASE IN INTESTINE [None]
  - PNEUMOTHORAX [None]
  - ACUTE GRAFT VERSUS HOST DISEASE IN LIVER [None]
